FAERS Safety Report 18200815 (Version 1)
Quarter: 2020Q3

REPORT INFORMATION
  Report Type: Spontaneous
  Country: US (occurrence: US)
  Receive Date: 20200827
  Receipt Date: 20200827
  Transmission Date: 20201103
  Serious: No
  Sender: FDA-Public Use
  Company Number: US-GILEAD-2020-0487729

PATIENT
  Age: 54 Year
  Sex: Female

DRUGS (4)
  1. AMRIX [Concomitant]
     Active Substance: CYCLOBENZAPRINE HYDROCHLORIDE
  2. SOFOSBUVIR;VELPATASVIR [Suspect]
     Active Substance: SOFOSBUVIR\VELPATASVIR
     Indication: CHRONIC HEPATITIS C
     Dosage: 1 DOSAGE FORM, QD
     Route: 048
  3. VISTARIL [Concomitant]
     Active Substance: HYDROXYZINE PAMOATE
  4. IBUPROFENIX MUJER [Concomitant]

REACTIONS (6)
  - Nervousness [Unknown]
  - Fatigue [Unknown]
  - Increased appetite [Unknown]
  - Anxiety [Unknown]
  - Headache [Unknown]
  - Abnormal weight gain [Unknown]
